FAERS Safety Report 14032367 (Version 1)
Quarter: 2017Q4

REPORT INFORMATION
  Report Type: Spontaneous
  Country: US (occurrence: US)
  Receive Date: 20171003
  Receipt Date: 20171003
  Transmission Date: 20180321
  Serious: Yes (Life-Threatening, Hospitalization, Other)
  Sender: FDA-Public Use
  Company Number: US-SUN PHARMACEUTICAL INDUSTRIES LTD-2016US-116796

PATIENT
  Age: 16 Year
  Sex: Female

DRUGS (1)
  1. BUPROPION. [Suspect]
     Active Substance: BUPROPION
     Indication: DEPRESSION
     Dosage: 60 TABS
     Route: 048

REACTIONS (11)
  - Pulseless electrical activity [Recovering/Resolving]
  - Pupil fixed [Recovered/Resolved]
  - Cardiomyopathy [Recovered/Resolved]
  - Compartment syndrome [Recovering/Resolving]
  - Sedation [Recovered/Resolved]
  - Status epilepticus [Recovered/Resolved]
  - Cardiogenic shock [Recovered/Resolved]
  - Seizure [Recovered/Resolved]
  - Cardiac arrest [Recovered/Resolved]
  - Toxicity to various agents [Recovered/Resolved]
  - Rhabdomyolysis [Recovering/Resolving]
